FAERS Safety Report 6877335-6 (Version None)
Quarter: 2010Q3

REPORT INFORMATION
  Report Type: 
  Country: None (occurrence: None)
  Receive Date: 20100727
  Receipt Date: 20091222
  Transmission Date: 20110219
  Serious: No
  Sender: FDA-Public Use
  Company Number: US-ABBOTT-09P-163-0597961-00

PATIENT
  Sex: Female
  Weight: 91.254 kg

DRUGS (8)
  1. SYNTHROID [Suspect]
     Indication: AUTOIMMUNE THYROIDITIS
     Dates: start: 19710101, end: 20060101
  2. SYNTHROID [Suspect]
     Dates: start: 20060101, end: 20060101
  3. SYNTHROID [Suspect]
  4. SYNTHROID [Suspect]
     Indication: AUTOIMMUNE THYROIDITIS
     Route: 048
     Dates: start: 20060101, end: 20090501
  5. SYNTHROID [Suspect]
     Dates: start: 20090501
  6. SYNTHROID [Suspect]
     Indication: AUTOIMMUNE THYROIDITIS
     Route: 048
     Dates: end: 20090801
  7. SYNTHROID [Suspect]
     Route: 048
     Dates: start: 20090801, end: 20090801
  8. SYNTHROID [Suspect]
     Indication: AUTOIMMUNE THYROIDITIS
     Dates: start: 20090910

REACTIONS (20)
  - BLOOD PRESSURE INCREASED [None]
  - BLOOD THYROID STIMULATING HORMONE ABNORMAL [None]
  - CHEST DISCOMFORT [None]
  - DYSPNOEA [None]
  - FEELING ABNORMAL [None]
  - FEELING COLD [None]
  - HAIR DISORDER [None]
  - HEADACHE [None]
  - HEART RATE INCREASED [None]
  - HYPERHIDROSIS [None]
  - HYPOTHYROIDISM [None]
  - INSOMNIA [None]
  - JOINT SWELLING [None]
  - MIDDLE INSOMNIA [None]
  - PSYCHOMOTOR HYPERACTIVITY [None]
  - SKIN DISORDER [None]
  - THYROXINE ABNORMAL [None]
  - TREMOR [None]
  - TRI-IODOTHYRONINE FREE ABNORMAL [None]
  - WEIGHT INCREASED [None]
